FAERS Safety Report 7800952-3 (Version None)
Quarter: 2011Q4

REPORT INFORMATION
  Report Type: 
  Country: None (occurrence: None)
  Receive Date: 20111006
  Receipt Date: 20101220
  Transmission Date: 20120403
  Serious: No
  Sender: FDA-Public Use
  Company Number: US-BAYER-2010-008669

PATIENT
  Age: 74 Year
  Sex: Male

DRUGS (3)
  1. LIPITOR [Concomitant]
  2. LEVITRA [Suspect]
     Indication: APHRODISIAC THERAPY
     Dosage: 20 MG, UNK
     Route: 048
     Dates: start: 20101201, end: 20101215
  3. LEVITRA [Suspect]
     Indication: ERECTILE DYSFUNCTION

REACTIONS (1)
  - ERECTILE DYSFUNCTION [None]
